FAERS Safety Report 4926869-X (Version None)
Quarter: 2006Q1

REPORT INFORMATION
  Report Type: 
  Country: None (occurrence: None)
  Receive Date: 20060228
  Receipt Date: 20050707
  Transmission Date: 20060701
  Serious: Yes (Other)
  Sender: FDA-Public Use
  Company Number: US-GLAXOSMITHKLINE-A0565324A

PATIENT
  Age: 26 Year
  Sex: Female

DRUGS (2)
  1. LAMICTAL [Suspect]
     Route: 048
     Dates: start: 20040801
  2. ACIPHEX [Concomitant]

REACTIONS (3)
  - ACCIDENTAL OVERDOSE [None]
  - ORAL SOFT TISSUE DISORDER [None]
  - RASH [None]
